FAERS Safety Report 9392685 (Version 1)
Quarter: 2013Q3

REPORT INFORMATION
  Report Type: Spontaneous
  Country: AU (occurrence: AU)
  Receive Date: 20130710
  Receipt Date: 20130710
  Transmission Date: 20140515
  Serious: Yes (Other)
  Sender: FDA-Public Use
  Company Number: PHHY2013AU072592

PATIENT
  Age: 58 Year
  Sex: Female

DRUGS (6)
  1. ZOLEDRONIC ACID [Suspect]
  2. PAMIDRONATE [Suspect]
  3. ASPIRIN [Concomitant]
  4. CYCLOPHOSPHAMIDE [Concomitant]
  5. DEXAMETHASONE [Concomitant]
  6. LENALIDOMIDE [Concomitant]

REACTIONS (1)
  - Osteonecrosis of jaw [Unknown]
